FAERS Safety Report 13639486 (Version 1)
Quarter: 2017Q2

REPORT INFORMATION
  Report Type: Spontaneous
  Country: US (occurrence: US)
  Receive Date: 20170609
  Receipt Date: 20170609
  Transmission Date: 20170830
  Serious: No
  Sender: FDA-Public Use
  Company Number: US-ROCHE-1221245

PATIENT
  Sex: Male

DRUGS (5)
  1. CARBAMAZEPINE. [Concomitant]
     Active Substance: CARBAMAZEPINE
     Indication: SEIZURE
  2. TEGRETOL [Concomitant]
     Active Substance: CARBAMAZEPINE
  3. KLONOPIN [Suspect]
     Active Substance: CLONAZEPAM
     Indication: ANXIETY
     Route: 048
  4. PAROXIL [Concomitant]
     Indication: DEPRESSION
  5. PAROXIL [Concomitant]
     Indication: ANXIETY

REACTIONS (1)
  - Drug ineffective [Unknown]
